FAERS Safety Report 17750582 (Version 1)
Quarter: 2020Q2

REPORT INFORMATION
  Report Type: Spontaneous
  Country: US (occurrence: US)
  Receive Date: 20200506
  Receipt Date: 20200506
  Transmission Date: 20200714
  Serious: Yes (Other)
  Sender: FDA-Public Use
  Company Number: US-LUPIN PHARMACEUTICALS INC.-2020-01958

PATIENT
  Age: 28 Year
  Sex: Female

DRUGS (3)
  1. PREDNISONE. [Suspect]
     Active Substance: PREDNISONE
     Indication: MULTIPLE SCLEROSIS
     Dosage: UNK
     Route: 048
  2. METHYLPREDNISOLONE. [Suspect]
     Active Substance: METHYLPREDNISOLONE
     Indication: MULTIPLE SCLEROSIS
     Dosage: UNK
     Route: 042
  3. PREDNISONE. [Suspect]
     Active Substance: PREDNISONE
     Dosage: UNK (TAPER)
     Route: 048

REACTIONS (1)
  - Reversible cerebral vasoconstriction syndrome [Recovering/Resolving]
